FAERS Safety Report 25506610 (Version 1)
Quarter: 2025Q3

REPORT INFORMATION
  Report Type: Other
  Country: EU (occurrence: EU)
  Receive Date: 20250702
  Receipt Date: 20250702
  Transmission Date: 20251020
  Serious: Yes (Life-Threatening, Hospitalization)
  Sender: AIRGAS THERAPEUTICS LLC
  Company Number: EU-Airgas Therapeutics LLC-2179813

PATIENT
  Age: 6 Month
  Sex: Female
  Weight: 4.9 kg

DRUGS (3)
  1. ULSPIRA [Suspect]
     Active Substance: NITRIC OXIDE
     Indication: Pulmonary hypertension
  2. SILDENAFIL [Concomitant]
     Active Substance: SILDENAFIL
  3. ILOPROST [Concomitant]
     Active Substance: ILOPROST

REACTIONS (1)
  - Pulmonary oedema [Recovered/Resolved]
